FAERS Safety Report 8345706-7 (Version None)
Quarter: 2012Q2

REPORT INFORMATION
  Report Type: 
  Country: None (occurrence: None)
  Receive Date: 20120508
  Receipt Date: 20120426
  Transmission Date: 20120825
  Serious: Yes (Hospitalization, Other)
  Sender: FDA-Public Use
  Company Number: US-BAXTER-2012BAX003116

PATIENT
  Sex: Female

DRUGS (2)
  1. DIANEAL LOW CALCIUM W/ DEXTROSE 1.5% [Suspect]
     Indication: PERITONEAL DIALYSIS
     Route: 033
  2. DIANEAL [Suspect]
     Indication: PERITONEAL DIALYSIS
     Route: 033

REACTIONS (6)
  - BLOOD MAGNESIUM INCREASED [None]
  - GASTROENTERITIS VIRAL [None]
  - DEHYDRATION [None]
  - FALL [None]
  - ACCIDENTAL OVERDOSE [None]
  - ANKLE FRACTURE [None]
